FAERS Safety Report 6941410-8 (Version None)
Quarter: 2010Q3

REPORT INFORMATION
  Report Type: 
  Country: None (occurrence: None)
  Receive Date: 20100825
  Receipt Date: 20100811
  Transmission Date: 20110219
  Serious: Yes (Other)
  Sender: FDA-Public Use
  Company Number: TW-MYLANLABS-2010S1014539

PATIENT
  Age: 65 Year
  Sex: Male

DRUGS (6)
  1. NAPROXEN [Suspect]
     Route: 065
  2. LEVOFLOXACIN [Concomitant]
     Route: 065
  3. TAMSULOSIN HCL [Concomitant]
     Indication: BENIGN PROSTATIC HYPERPLASIA
     Route: 065
  4. TOLTERODINE [Concomitant]
     Indication: BENIGN PROSTATIC HYPERPLASIA
     Route: 065
  5. ACARBOSE [Concomitant]
     Indication: TYPE 2 DIABETES MELLITUS
     Route: 065
  6. GLIMEPIRIDE [Concomitant]
     Indication: TYPE 2 DIABETES MELLITUS
     Route: 065

REACTIONS (1)
  - PSEUDOLYMPHOMA [None]
